FAERS Safety Report 9648851 (Version 1)
Quarter: 2013Q4

REPORT INFORMATION
  Report Type: Spontaneous
  Country: US (occurrence: None)
  Receive Date: 20131025
  Receipt Date: 20131025
  Transmission Date: 20140711
  Serious: Yes (Death)
  Sender: FDA-Public Use
  Company Number: None

PATIENT
  Age: 42 Year
  Sex: Female
  Weight: 70 kg

DRUGS (5)
  1. HERCEPTIN [Suspect]
     Indication: BREAST CANCER
     Dosage: 2 DOSES,9-12-13 DOSE IN MD OFFICE.
     Route: 042
     Dates: start: 20130912
  2. COMPAZINE [Concomitant]
  3. ELAVIL [Concomitant]
  4. PRILOSEC [Concomitant]
  5. ZANAFLEX [Concomitant]

REACTIONS (9)
  - Rhabdomyolysis [None]
  - Renal failure acute [None]
  - Thrombocytopenia [None]
  - Hypotension [None]
  - Dyspnoea [None]
  - Tachycardia [None]
  - Livedo reticularis [None]
  - Heart rate decreased [None]
  - Abdominal pain [None]
